FAERS Safety Report 4276743-X (Version None)
Quarter: 2004Q1

REPORT INFORMATION
  Report Type: 
  Country: None (occurrence: None)
  Receive Date: 20040120
  Receipt Date: 20040120
  Transmission Date: 20041129
  Serious: Yes (Hospitalization)
  Sender: FDA-Public Use
  Company Number: None

PATIENT
  Age: 75 Year
  Sex: Male
  Weight: 99.8 kg

DRUGS (4)
  1. MS CONTIN [Suspect]
  2. GABAPENTIN [Concomitant]
  3. ETODOLAC XL [Concomitant]
  4. HYDROCODONE/APAP [Concomitant]

REACTIONS (1)
  - SOMNOLENCE [None]
